FAERS Safety Report 4925244-1 (Version None)
Quarter: 2006Q1

REPORT INFORMATION
  Report Type: 
  Country: None (occurrence: None)
  Receive Date: 20060222
  Receipt Date: 20060222
  Transmission Date: 20060701
  Serious: No
  Sender: FDA-Public Use
  Company Number: None

PATIENT
  Age: 38 Year
  Sex: Female

DRUGS (16)
  1. TENOFOVIR DISOPROXIL [Suspect]
  2. PREGABALIN [Concomitant]
  3. REYATAZ [Concomitant]
  4. CLOTRIMAZOLE [Concomitant]
  5. DRONABINOL [Concomitant]
  6. FENTANYL [Concomitant]
  7. IBUPROFEN [Concomitant]
  8. LAMIVUDINE [Concomitant]
  9. OTHRO TRI CYCLEN [Concomitant]
  10. OMEPRAZOLE [Concomitant]
  11. ONDANSETRON [Concomitant]
  12. OXYCOONE ERT [Concomitant]
  13. ACETAMINOPHEN/OXYCODONE [Concomitant]
  14. RITONAVIR [Concomitant]
  15. ZOLPIDEM [Concomitant]
  16. CLINDAMYCIN [Concomitant]

REACTIONS (8)
  - FANCONI SYNDROME [None]
  - HYPOVOLAEMIA [None]
  - METABOLIC ACIDOSIS [None]
  - NAUSEA [None]
  - PANCREATITIS [None]
  - RENAL FAILURE ACUTE [None]
  - RENAL TUBULAR ACIDOSIS [None]
  - VOMITING [None]
